FAERS Safety Report 6321737-3 (Version None)
Quarter: 2009Q3

REPORT INFORMATION
  Report Type: 
  Country: None (occurrence: None)
  Receive Date: 20090824
  Receipt Date: 20090811
  Transmission Date: 20100115
  Serious: Yes (Hospitalization, Other)
  Sender: FDA-Public Use
  Company Number: US-ROCHE-643404

PATIENT
  Sex: Female
  Weight: 59 kg

DRUGS (3)
  1. XELODA [Suspect]
     Indication: BREAST CANCER METASTATIC
     Dosage: DOSAGE FORM: 2 TABLETS TWICE A DAY
     Route: 048
     Dates: start: 20090513
  2. ADVAIR HFA [Concomitant]
     Dosage: OTHER INDICATION: EMPHYSEMA
  3. SPIRIVA [Concomitant]
     Dosage: OTHER INDICATION: EMPHYSEMA

REACTIONS (7)
  - ATRIAL FLUTTER [None]
  - CONFUSIONAL STATE [None]
  - DISORIENTATION [None]
  - HEART RATE INCREASED [None]
  - PALPITATIONS [None]
  - RESPIRATORY ACIDOSIS [None]
  - TACHYCARDIA [None]
